FAERS Safety Report 22917963 (Version 3)
Quarter: 2023Q4

REPORT INFORMATION
  Report Type: Report from Study
  Country: US (occurrence: US)
  Receive Date: 20230907
  Receipt Date: 20231017
  Transmission Date: 20240109
  Serious: Yes (Hospitalization)
  Sender: FDA-Public Use
  Company Number: US-JNJFOC-20230862992

PATIENT
  Age: 70 Year
  Sex: Female

DRUGS (2)
  1. STELARA [Suspect]
     Active Substance: USTEKINUMAB
     Indication: Crohn^s disease
     Dosage: 90.00 MG/ML
     Route: 058
     Dates: start: 20230329
  2. STELARA [Suspect]
     Active Substance: USTEKINUMAB

REACTIONS (5)
  - Loss of consciousness [Unknown]
  - Heart rate increased [Unknown]
  - Device defective [Unknown]
  - Fistula [Recovering/Resolving]
  - Device malfunction [Unknown]
